FAERS Safety Report 8995611 (Version 1)
Quarter: 2013Q1

REPORT INFORMATION
  Report Type: Spontaneous
  Country: US (occurrence: US)
  Receive Date: 20130103
  Receipt Date: 20130103
  Transmission Date: 20140127
  Serious: No
  Sender: FDA-Public Use
  Company Number: US-ABBOTT-12P-163-0890673-00

PATIENT
  Age: 48 Year
  Sex: Female
  Weight: 80.81 kg

DRUGS (3)
  1. SYNTHROID [Suspect]
     Indication: HYPOTHYROIDISM
  2. SYNTHROID [Suspect]
     Indication: HYPOTHYROIDISM
  3. MELLARIL [Concomitant]
     Indication: SCHIZOPHRENIA
     Dates: start: 1982

REACTIONS (7)
  - Schizophrenia [Not Recovered/Not Resolved]
  - Hallucination [Not Recovered/Not Resolved]
  - Thyroid disorder [Not Recovered/Not Resolved]
  - Hyperthyroidism [Unknown]
  - Hypothyroidism [Unknown]
  - Weight fluctuation [Unknown]
  - Drug effect decreased [Not Recovered/Not Resolved]
